FAERS Safety Report 6140633-8 (Version None)
Quarter: 2009Q1

REPORT INFORMATION
  Report Type: 
  Country: None (occurrence: None)
  Receive Date: 20090331
  Receipt Date: 20090331
  Transmission Date: 20090719
  Serious: No
  Sender: FDA-Public Use
  Company Number: None

PATIENT

DRUGS (1)
  1. IRON FERROUS SULFATE, 65MG NATURE'S BLEND [Suspect]

REACTIONS (3)
  - INCORRECT DOSE ADMINISTERED [None]
  - MEDICATION ERROR [None]
  - THERAPEUTIC AGENT TOXICITY [None]
